FAERS Safety Report 9142887 (Version 1)
Quarter: 2013Q1

REPORT INFORMATION
  Report Type: Spontaneous
  Country: US (occurrence: US)
  Receive Date: 20130306
  Receipt Date: 20130306
  Transmission Date: 20140127
  Serious: No
  Sender: FDA-Public Use
  Company Number: US-PFIZER INC-2013076659

PATIENT
  Sex: Female

DRUGS (3)
  1. GEODON [Suspect]
     Indication: MOOD SWINGS
     Dosage: 20 MG, UNK
  2. GEODON [Suspect]
     Indication: ANXIETY
  3. LAMOTRIGINE [Suspect]
     Indication: BIPOLAR DISORDER
     Dosage: UNK

REACTIONS (2)
  - Somnolence [Unknown]
  - Sedation [Unknown]
